FAERS Safety Report 18306910 (Version 1)
Quarter: 2020Q3

REPORT INFORMATION
  Report Type: Report from Study
  Country: US (occurrence: US)
  Receive Date: 20200924
  Receipt Date: 20200924
  Transmission Date: 20201105
  Serious: Yes (Other)
  Sender: FDA-Public Use
  Company Number: US-NOVOPROD-753724

PATIENT
  Age: 65 Year
  Weight: 59.9 kg

DRUGS (1)
  1. TUROCTOCOG ALFA PEGOL. [Suspect]
     Active Substance: TUROCTOCOG ALFA PEGOL
     Indication: FACTOR VIII DEFICIENCY
     Dosage: 50 IU/KG
     Route: 042
     Dates: start: 2020

REACTIONS (1)
  - Haemorrhage [Unknown]

NARRATIVE: CASE EVENT DATE: 2020
